FAERS Safety Report 5247155-7 (Version None)
Quarter: 2007Q1

REPORT INFORMATION
  Report Type: 
  Country: None (occurrence: None)
  Receive Date: 20070221
  Receipt Date: 20061122
  Transmission Date: 20070707
  Serious: Yes (Other)
  Sender: FDA-Public Use
  Company Number: 2006-02996

PATIENT
  Age: 65 Year
  Sex: Male
  Weight: 93.9 kg

DRUGS (1)
  1. VELCADE [Suspect]
     Indication: AMYLOIDOSIS
     Dosage: 2.50 MG, IV BOLUS
     Route: 040
     Dates: start: 20060901

REACTIONS (2)
  - CELLULITIS [None]
  - PHLEBITIS [None]
